FAERS Safety Report 19443861 (Version 14)
Quarter: 2024Q2

REPORT INFORMATION
  Report Type: Report from Study
  Country: US (occurrence: US)
  Receive Date: 20210621
  Receipt Date: 20240603
  Transmission Date: 20240716
  Serious: Yes (Hospitalization, Other)
  Sender: FDA-Public Use
  Company Number: US-TAKEDA-US201900107

PATIENT
  Age: 66 Year
  Sex: Female

DRUGS (5)
  1. HUMAN IMMUNOGLOBULIN G [Suspect]
     Active Substance: HUMAN IMMUNOGLOBULIN G
     Indication: Hypogammaglobulinaemia
     Dosage: UNK
     Route: 042
  2. HUMAN IMMUNOGLOBULIN G [Suspect]
     Active Substance: HUMAN IMMUNOGLOBULIN G
     Indication: Hypogammaglobulinaemia
     Dosage: UNK
     Route: 042
  3. HUMAN IMMUNOGLOBULIN G [Suspect]
     Active Substance: HUMAN IMMUNOGLOBULIN G
     Indication: Primary immunodeficiency syndrome
  4. HUMAN IMMUNOGLOBULIN G [Suspect]
     Active Substance: HUMAN IMMUNOGLOBULIN G
     Indication: Primary immunodeficiency syndrome
  5. CUVITRU [Suspect]
     Active Substance: HUMAN IMMUNOGLOBULIN G
     Indication: Product used for unknown indication
     Dosage: UNK
     Route: 065

REACTIONS (24)
  - Pneumonia [Unknown]
  - Oral candidiasis [Unknown]
  - Fall [Unknown]
  - Gait disturbance [Unknown]
  - Narcolepsy [Unknown]
  - Rib fracture [Unknown]
  - Cardiac failure congestive [Unknown]
  - Pain in extremity [Not Recovered/Not Resolved]
  - Hypersomnia [Unknown]
  - COVID-19 [Not Recovered/Not Resolved]
  - Drug interaction [Unknown]
  - Anal incontinence [Unknown]
  - Oral mucosal blistering [Unknown]
  - Large intestine polyp [Unknown]
  - Irritable bowel syndrome [Unknown]
  - Post-acute COVID-19 syndrome [Unknown]
  - Bronchitis chronic [Unknown]
  - Fibromyalgia [Unknown]
  - Diarrhoea [Unknown]
  - Headache [Unknown]
  - Fatigue [Unknown]
  - Malaise [Unknown]
  - Arthralgia [Unknown]
  - Illness [Unknown]

NARRATIVE: CASE EVENT DATE: 20240301
